FAERS Safety Report 5742999-7 (Version None)
Quarter: 2008Q2

REPORT INFORMATION
  Report Type: 
  Country: None (occurrence: None)
  Receive Date: 20080515
  Receipt Date: 20080515
  Transmission Date: 20081010
  Serious: No
  Sender: FDA-Public Use
  Company Number: None

PATIENT
  Age: 42 Year
  Sex: Female
  Weight: 85.2762 kg

DRUGS (1)
  1. ADDERALL XR 20 [Suspect]
     Dosage: 1 DAILY PO
     Route: 048
     Dates: start: 20070101, end: 20080514

REACTIONS (2)
  - ALOPECIA [None]
  - TRICHORRHEXIS [None]
